FAERS Safety Report 16456004 (Version 1)
Quarter: 2019Q2

REPORT INFORMATION
  Report Type: Spontaneous
  Country: EG (occurrence: EG)
  Receive Date: 20190620
  Receipt Date: 20190620
  Transmission Date: 20190711
  Serious: Yes (Other)
  Sender: FDA-Public Use
  Company Number: EG-HIKMA PHARMACEUTICALS USA INC.-EG-H14001-19-03969

PATIENT
  Age: 53 Year
  Sex: Male
  Weight: 71 kg

DRUGS (4)
  1. ETOPUL [Suspect]
     Active Substance: ETOPOSIDE
     Route: 041
     Dates: start: 20180505
  2. CYTOPLATIN [Suspect]
     Active Substance: CISPLATIN
     Indication: LUNG NEOPLASM MALIGNANT
     Dosage: TAKEN ON DAY ONE OF THE CYCLE.
     Route: 041
     Dates: start: 20190503
  3. ETOPUL [Suspect]
     Active Substance: ETOPOSIDE
     Indication: LUNG NEOPLASM MALIGNANT
     Route: 041
     Dates: start: 20180503
  4. ETOPUL [Suspect]
     Active Substance: ETOPOSIDE
     Route: 041
     Dates: start: 20180504

REACTIONS (3)
  - Urinary incontinence [Recovered/Resolved]
  - Loss of consciousness [Recovered/Resolved]
  - Seizure [Recovered/Resolved]

NARRATIVE: CASE EVENT DATE: 20180504
